FAERS Safety Report 16304056 (Version 1)
Quarter: 2019Q2

REPORT INFORMATION
  Report Type: Spontaneous
  Country: US (occurrence: US)
  Receive Date: 20190513
  Receipt Date: 20190513
  Transmission Date: 20190711
  Serious: Yes (Other)
  Sender: FDA-Public Use
  Company Number: US-SA-2019SA120527

PATIENT
  Age: 80 Year
  Sex: Male

DRUGS (15)
  1. HYDRALAZINE [Suspect]
     Active Substance: HYDRALAZINE HYDROCHLORIDE
  2. MACROBID [Suspect]
     Active Substance: NITROFURANTOIN\NITROFURANTOIN MONOHYDRATE
  3. MELATONIN [Suspect]
     Active Substance: MELATONIN
  4. PANTOPRAZOLE [Suspect]
     Active Substance: PANTOPRAZOLE
  5. DONEPEZIL HYDROCHLORIDE. [Suspect]
     Active Substance: DONEPEZIL HYDROCHLORIDE
     Indication: URINARY INCONTINENCE
  6. MONTELUKAST [Suspect]
     Active Substance: MONTELUKAST SODIUM
  7. LISINOPRIL. [Suspect]
     Active Substance: LISINOPRIL
  8. TROSPIUM [Suspect]
     Active Substance: TROSPIUM
     Indication: URINARY INCONTINENCE
  9. BECLOMETHASONE [BECLOMETASONE] [Suspect]
     Active Substance: BECLOMETHASONE
  10. SIMVASTATIN. [Suspect]
     Active Substance: SIMVASTATIN
  11. TERAZOSIN [Suspect]
     Active Substance: TERAZOSIN\TERAZOSIN HYDROCHLORIDE
  12. CHOLECALCIFEROL [Suspect]
     Active Substance: CHOLECALCIFEROL
  13. WARFARIN SODIUM. [Suspect]
     Active Substance: WARFARIN SODIUM
  14. METOPROLOL TARTRATE. [Suspect]
     Active Substance: METOPROLOL TARTRATE
  15. ALBUTEROL [SALBUTAMOL] [Suspect]
     Active Substance: ALBUTEROL

REACTIONS (2)
  - Drug ineffective [Unknown]
  - Loss of personal independence in daily activities [Recovered/Resolved]
